FAERS Safety Report 6202311-6 (Version None)
Quarter: 2009Q2

REPORT INFORMATION
  Report Type: 
  Country: None (occurrence: None)
  Receive Date: 20090520
  Receipt Date: 20090505
  Transmission Date: 20091009
  Serious: Yes (Other)
  Sender: FDA-Public Use
  Company Number: JPI-P-007091

PATIENT
  Age: 44 Year
  Sex: Male
  Weight: 87.0906 kg

DRUGS (17)
  1. XYREM [Suspect]
     Indication: NARCOLEPSY
     Dosage: SEE IMAGE
     Route: 048
     Dates: start: 20080801, end: 20080101
  2. XYREM [Suspect]
     Indication: NARCOLEPSY
     Dosage: SEE IMAGE
     Route: 048
     Dates: start: 20080530, end: 20080801
  3. XYREM [Suspect]
     Indication: NARCOLEPSY
     Dosage: SEE IMAGE
     Route: 048
     Dates: start: 20081008
  4. ENFUVIRITIDE [Concomitant]
  5. RITONAVA [Concomitant]
  6. EMTRICITABINE [Concomitant]
  7. DARUNAVIR [Concomitant]
  8. ENTRAVIRINE [Concomitant]
  9. TESTOSTERONE [Concomitant]
  10. FENOFIBRATE [Concomitant]
  11. METOPROLOL SUCCINATE [Concomitant]
  12. QUINAPRIL [Concomitant]
  13. METHYLPHENIDATE HCL [Concomitant]
  14. TADALAFIL [Concomitant]
  15. CLOTRIMAZOLE [Concomitant]
  16. LORAZEPAM [Concomitant]
  17. ALPRAZOLAM [Concomitant]

REACTIONS (3)
  - CONVULSION [None]
  - PROSTATITIS [None]
  - WEIGHT DECREASED [None]
